FAERS Safety Report 5390585-3 (Version None)
Quarter: 2007Q3

REPORT INFORMATION
  Report Type: 
  Country: None (occurrence: None)
  Receive Date: 20070718
  Receipt Date: 20070706
  Transmission Date: 20080115
  Serious: Yes (Hospitalization)
  Sender: FDA-Public Use
  Company Number: GB-PFIZER INC-2007056384

PATIENT
  Sex: Male

DRUGS (7)
  1. LYRICA [Suspect]
     Indication: CONVULSION
     Route: 048
  2. COTRIM [Concomitant]
  3. PHYTOMENADIONE [Concomitant]
     Dosage: DAILY DOSE:10MG
  4. CETIRIZINE HCL [Concomitant]
  5. HYDROXYZINE [Concomitant]
     Dosage: DAILY DOSE:25MG
  6. GABAPENTIN [Concomitant]
     Dosage: DAILY DOSE:900MG
  7. INSULIN ACTRAPID HUMAN [Concomitant]

REACTIONS (4)
  - HAEMODYNAMIC INSTABILITY [None]
  - LYMPHADENOPATHY [None]
  - PERICARDIAL EFFUSION [None]
  - PLEURAL EFFUSION [None]
